FAERS Safety Report 24890042 (Version 1)
Quarter: 2025Q1

REPORT INFORMATION
  Report Type: Spontaneous
  Country: US (occurrence: US)
  Receive Date: 20250127
  Receipt Date: 20250127
  Transmission Date: 20250409
  Serious: Yes (Hospitalization)
  Sender: NOVO NORDISK
  Company Number: US-NOVOPROD-1353091

PATIENT
  Age: 67 Year
  Sex: Male

DRUGS (9)
  1. OZEMPIC [Suspect]
     Active Substance: SEMAGLUTIDE
     Dosage: 1 MG, QW(DOSE DECREASED)
     Route: 058
  2. OZEMPIC [Suspect]
     Active Substance: SEMAGLUTIDE
     Indication: Type 2 diabetes mellitus
     Route: 058
     Dates: start: 2021
  3. OZEMPIC [Suspect]
     Active Substance: SEMAGLUTIDE
     Dosage: 2 MG, QW
     Route: 058
  4. TRESIBA [Suspect]
     Active Substance: INSULIN DEGLUDEC
     Indication: Type 2 diabetes mellitus
     Dosage: 28 IU, BID
     Route: 058
     Dates: start: 2018
  5. TRESIBA [Suspect]
     Active Substance: INSULIN DEGLUDEC
     Dosage: 22 IU, BID(DOSE DECREASED)
     Route: 058
  6. TRESIBA [Suspect]
     Active Substance: INSULIN DEGLUDEC
     Route: 058
  7. NOVOLOG [Suspect]
     Active Substance: INSULIN ASPART
     Dosage: 22 IU, BID(DOSE DECREASED)
     Route: 058
  8. NOVOLOG [Suspect]
     Active Substance: INSULIN ASPART
     Route: 058
  9. NOVOLOG [Suspect]
     Active Substance: INSULIN ASPART
     Indication: Type 2 diabetes mellitus
     Dosage: 28 IU, BID
     Route: 058
     Dates: start: 2021

REACTIONS (4)
  - Abscess limb [Recovering/Resolving]
  - Hyperkeratosis [Recovering/Resolving]
  - Hyperkeratosis [Recovering/Resolving]
  - Blood glucose decreased [Unknown]

NARRATIVE: CASE EVENT DATE: 20250103
